FAERS Safety Report 5741038-1 (Version None)
Quarter: 2008Q2

REPORT INFORMATION
  Report Type: 
  Country: None (occurrence: None)
  Receive Date: 20080516
  Receipt Date: 20080505
  Transmission Date: 20081010
  Serious: Yes (Other)
  Sender: FDA-Public Use
  Company Number: US-PFIZER INC-2008039516

PATIENT
  Sex: Female
  Weight: 97 kg

DRUGS (8)
  1. NEURONTIN [Suspect]
     Indication: NEUROPATHY PERIPHERAL
  2. LYRICA [Suspect]
     Indication: NEUROPATHY PERIPHERAL
     Dates: start: 20070101, end: 20080101
  3. ARIMIDEX [Concomitant]
     Dates: start: 20060101, end: 20061101
  4. LORTAB [Concomitant]
  5. COLACE [Concomitant]
  6. KLONOPIN [Concomitant]
  7. CHEMOTHERAPY NOS [Concomitant]
  8. ALL OTHER THERAPEUTIC PRODUCTS [Concomitant]

REACTIONS (6)
  - AGGRESSION [None]
  - BREAST CANCER RECURRENT [None]
  - HALLUCINATION [None]
  - HIP FRACTURE [None]
  - HOMICIDAL IDEATION [None]
  - SUICIDAL IDEATION [None]
